FAERS Safety Report 21927603 (Version 7)
Quarter: 2024Q4

REPORT INFORMATION
  Report Type: Spontaneous
  Country: US (occurrence: US)
  Receive Date: 20230130
  Receipt Date: 20241122
  Transmission Date: 20250115
  Serious: Yes (Hospitalization, Other)
  Sender: PFIZER
  Company Number: US-PFIZER INC-PV202300018563

PATIENT
  Age: 78 Year
  Sex: Female

DRUGS (1)
  1. IBRANCE [Suspect]
     Active Substance: PALBOCICLIB
     Indication: Breast cancer female
     Dosage: 125 MG, CYCLIC (DAILY, TAKE ONE TABLET BY MOUTH ONE TIME PER DAY ON DAYS 1-21 FOR 28 DAY CYCLE)
     Route: 048

REACTIONS (2)
  - Vertigo [Unknown]
  - Product dose omission issue [Unknown]
